FAERS Safety Report 8502089-7 (Version None)
Quarter: 2012Q2

REPORT INFORMATION
  Report Type: 
  Country: None (occurrence: None)
  Receive Date: 20120405
  Receipt Date: 20100730
  Transmission Date: 20120825
  Serious: Yes (Disabling)
  Sender: FDA-Public Use
  Company Number: PHHY2010US45922

PATIENT
  Age: 82 Year
  Sex: Male
  Weight: 82.7 kg

DRUGS (4)
  1. OXYCONTIN [Concomitant]
  2. LOTENSIN [Concomitant]
  3. RECLAST [Suspect]
     Indication: OSTEOPOROSIS
     Dosage: 5 MG/ YEAR, INTRAVENOUS
     Route: 042
     Dates: start: 20100608
  4. LESCOL XL [Concomitant]

REACTIONS (1)
  - PAIN IN JAW [None]
